FAERS Safety Report 24798844 (Version 1)
Quarter: 2025Q1

REPORT INFORMATION
  Report Type: Spontaneous
  Country: US (occurrence: US)
  Receive Date: 20250102
  Receipt Date: 20250102
  Transmission Date: 20250409
  Serious: No
  Sender: CELLTRION
  Company Number: US-CELLTRION INC.-2024US008667

PATIENT

DRUGS (4)
  1. TRUXIMA [Suspect]
     Active Substance: RITUXIMAB-ABBS
     Indication: Vasculitis
     Dates: start: 20240329
  2. TRUXIMA [Suspect]
     Active Substance: RITUXIMAB-ABBS
     Indication: Rheumatoid arthritis
  3. PREDNISONE [Concomitant]
     Active Substance: PREDNISONE
  4. HYDROXYCHLOROQUINE [Concomitant]
     Active Substance: HYDROXYCHLOROQUINE

REACTIONS (1)
  - Pyrexia [Unknown]

NARRATIVE: CASE EVENT DATE: 20240330
